FAERS Safety Report 7272399-2 (Version None)
Quarter: 2011Q1

REPORT INFORMATION
  Report Type: 
  Country: None (occurrence: None)
  Receive Date: 20110203
  Receipt Date: 20101216
  Transmission Date: 20110831
  Serious: Yes (Hospitalization)
  Sender: FDA-Public Use
  Company Number: US-BAYER-201037543NA

PATIENT
  Sex: Female
  Weight: 86.168 kg

DRUGS (6)
  1. YASMIN [Suspect]
     Indication: ACNE
     Dosage: UNK
     Dates: start: 20060227, end: 20070101
  2. HYDROCHLOROTHIAZIDE [Concomitant]
  3. OCELLA [Suspect]
     Indication: ACNE
  4. UNCODEABLE ^UNCLASSIFIABLE^ [Concomitant]
  5. LISINOPRIL [Concomitant]
  6. YAZ [Suspect]
     Indication: ACNE
     Dosage: UNK
     Dates: start: 20060101, end: 20070101

REACTIONS (2)
  - ABDOMINAL PAIN UPPER [None]
  - CHOLECYSTITIS CHRONIC [None]
